FAERS Safety Report 4397179-7 (Version None)
Quarter: 2004Q3

REPORT INFORMATION
  Report Type: 
  Country: None (occurrence: None)
  Receive Date: 20040708
  Receipt Date: 20040629
  Transmission Date: 20050211
  Serious: Yes (Other)
  Sender: FDA-Public Use
  Company Number: 2004043471

PATIENT
  Age: 24 Year
  Sex: Female

DRUGS (3)
  1. CETIRIZINE HCL [Suspect]
     Indication: ILL-DEFINED DISORDER
     Dosage: 4 IN 1 D, ORAL
     Route: 048
     Dates: start: 20040607, end: 20040609
  2. PARACETAMOL(PARACETAMOL) [Concomitant]
  3. FLUTICASONE PROPIONATE [Concomitant]

REACTIONS (4)
  - ABORTION SPONTANEOUS [None]
  - DRUG EXPOSURE DURING PREGNANCY [None]
  - MEDICATION ERROR [None]
  - TREATMENT NONCOMPLIANCE [None]
